FAERS Safety Report 8222605-2 (Version None)
Quarter: 2012Q1

REPORT INFORMATION
  Report Type: 
  Country: None (occurrence: None)
  Receive Date: 20120320
  Receipt Date: 20120306
  Transmission Date: 20120608
  Serious: Yes (Hospitalization)
  Sender: FDA-Public Use
  Company Number: FR-CELGENEUS-056-21880-10122183

PATIENT
  Sex: Male

DRUGS (3)
  1. REVLIMID [Suspect]
     Dosage: 10 MILLIGRAM
     Route: 048
     Dates: start: 20101115, end: 20101120
  2. NEORECORMON [Suspect]
     Dosage: 60000UI
     Route: 065
     Dates: start: 20101115
  3. REVLIMID [Suspect]
     Dosage: 10 MILLIGRAM
     Route: 048
     Dates: start: 20101227

REACTIONS (2)
  - INFECTIOUS PERITONITIS [None]
  - APPENDICITIS [None]
